FAERS Safety Report 4523563-4 (Version None)
Quarter: 2004Q4

REPORT INFORMATION
  Report Type: 
  Country: None (occurrence: None)
  Receive Date: 20041208
  Receipt Date: 20041202
  Transmission Date: 20050328
  Serious: Yes (Hospitalization)
  Sender: FDA-Public Use
  Company Number: 21385

PATIENT
  Age: 65 Year
  Sex: Male
  Weight: 81.6475 kg

DRUGS (7)
  1. NIASPAN [Suspect]
     Indication: BLOOD CHOLESTEROL INCREASED
     Dosage: 500 MG QHS PO
     Route: 048
     Dates: start: 20030101, end: 20030401
  2. NEXIUM [Suspect]
     Indication: HIATUS HERNIA
     Dosage: 30 MG QHS PO
     Route: 048
     Dates: start: 20030101, end: 20030401
  3. NORVASC [Concomitant]
  4. ATENOLOL [Concomitant]
  5. ZANTAC [Concomitant]
  6. ASPIRIN [Concomitant]
  7. MULTIVITAMIN [Concomitant]

REACTIONS (2)
  - ABDOMINAL PAIN [None]
  - NAUSEA [None]
